FAERS Safety Report 5737996-1 (Version None)
Quarter: 2008Q2

REPORT INFORMATION
  Report Type: 
  Country: None (occurrence: None)
  Receive Date: 20080508
  Receipt Date: 20071128
  Transmission Date: 20081010
  Serious: Yes (Other)
  Sender: FDA-Public Use
  Company Number: 43231

PATIENT
  Age: 25 Year
  Sex: Female
  Weight: 63.5036 kg

DRUGS (1)
  1. ACYCLOVIR [Suspect]
     Dosage: IV
     Route: 042
     Dates: start: 20071127, end: 20071128

REACTIONS (1)
  - VISUAL DISTURBANCE [None]
